FAERS Safety Report 20450505 (Version 2)
Quarter: 2022Q1

REPORT INFORMATION
  Report Type: Spontaneous
  Country: US (occurrence: US)
  Receive Date: 20220209
  Receipt Date: 20220215
  Transmission Date: 20220423
  Serious: Yes (Other)
  Sender: FDA-Public Use
  Company Number: US-SANOFI-00962375

PATIENT
  Age: 40 Year
  Sex: Female

DRUGS (1)
  1. TOUJEO MAX [Suspect]
     Active Substance: INSULIN GLARGINE
     Indication: Type 2 diabetes mellitus
     Dosage: 40 IU, QD

REACTIONS (4)
  - Impaired gastric emptying [Unknown]
  - Blood glucose increased [Unknown]
  - Device defective [Unknown]
  - Drug dose omission by device [Unknown]
